FAERS Safety Report 4427050-3 (Version None)
Quarter: 2004Q3

REPORT INFORMATION
  Report Type: 
  Country: None (occurrence: None)
  Receive Date: 20040726
  Receipt Date: 20040409
  Transmission Date: 20050211
  Serious: No
  Sender: FDA-Public Use
  Company Number: US_990725536

PATIENT
  Age: 72 Year
  Sex: Female
  Weight: 70 kg

DRUGS (8)
  1. EVISTA [Suspect]
     Indication: OSTEOPOROSIS
     Dosage: 60 MG 1 DAY
     Dates: start: 19990703
  2. FORTEO [Suspect]
     Indication: OSTEOPOROSIS
     Dates: start: 20040408
  3. ESTRACE [Concomitant]
  4. NAPROXEN [Concomitant]
  5. TUMS [Concomitant]
  6. ZIAC [Concomitant]
  7. ZESTORETIC [Concomitant]
  8. SYNTHROID [Concomitant]

REACTIONS (6)
  - BALANCE DISORDER [None]
  - FLUSHING [None]
  - HYPERHIDROSIS [None]
  - INJECTION SITE ERYTHEMA [None]
  - MUSCLE CRAMP [None]
  - MYALGIA [None]
